FAERS Safety Report 16354339 (Version 1)
Quarter: 2019Q2

REPORT INFORMATION
  Report Type: Spontaneous
  Country: AU (occurrence: AU)
  Receive Date: 20190524
  Receipt Date: 20190524
  Transmission Date: 20190711
  Serious: Yes (Other)
  Sender: FDA-Public Use
  Company Number: AU-BAXTER-2019BAX010011

PATIENT
  Age: 71 Year
  Sex: Female

DRUGS (4)
  1. BAXTER 0.9% SODIUM CHLORIDE 2.25G_250ML INJECTION BP BAG AHB1322 [Suspect]
     Active Substance: SODIUM CHLORIDE
     Dosage: RECOMMENCED (REINTRODUCED) AT AN HOURLY RATE
     Route: 065
     Dates: start: 20190515
  2. GEMCITABINE [Suspect]
     Active Substance: GEMCITABINE\GEMCITABINE HYDROCHLORIDE
     Dosage: RECOMMENCED (DRUG REINTRODUCED) AT AN HOURLY RATE
     Route: 065
     Dates: start: 20190515
  3. BAXTER 0.9% SODIUM CHLORIDE 2.25G_250ML INJECTION BP BAG AHB1322 [Suspect]
     Active Substance: SODIUM CHLORIDE
     Indication: MEDICATION DILUTION
     Dosage: WITH AN INFUSION RATE OF 600 MLS/HOUR OVER 30 MINUTES
     Route: 065
     Dates: start: 20190515, end: 20190515
  4. GEMCITABINE [Suspect]
     Active Substance: GEMCITABINE\GEMCITABINE HYDROCHLORIDE
     Indication: PRODUCT USED FOR UNKNOWN INDICATION
     Dosage: WITH AN INFUSION RATE OF 600 MLS/HOUR OVER 30 MINUTES
     Route: 065
     Dates: start: 20190515, end: 20190515

REACTIONS (4)
  - Malaise [Recovered/Resolved]
  - Flushing [Recovered/Resolved]
  - Abdominal pain [Recovered/Resolved]
  - Pain [Recovered/Resolved]

NARRATIVE: CASE EVENT DATE: 20190515
